FAERS Safety Report 23053522 (Version 1)
Quarter: 2023Q4

REPORT INFORMATION
  Report Type: Spontaneous
  Country: CN (occurrence: CN)
  Receive Date: 20231011
  Receipt Date: 20231011
  Transmission Date: 20240110
  Serious: Yes (Other)
  Sender: FDA-Public Use
  Company Number: CN-BRISTOL-MYERS SQUIBB COMPANY-2023-141863

PATIENT
  Age: 24 Year
  Sex: Female

DRUGS (25)
  1. AZACITIDINE [Suspect]
     Active Substance: AZACITIDINE
     Indication: Acute monocytic leukaemia
     Dates: start: 20220824
  2. OMACETAXINE MEPESUCCINATE [Suspect]
     Active Substance: OMACETAXINE MEPESUCCINATE
     Indication: Acute monocytic leukaemia
     Dates: start: 20220824
  3. CYTARABINE [Suspect]
     Active Substance: CYTARABINE
     Indication: Acute monocytic leukaemia
     Dosage: HIGH DOSE
     Dates: start: 20220714
  4. CYTARABINE [Suspect]
     Active Substance: CYTARABINE
     Dosage: HIGH DOSE
     Dates: start: 20220618
  5. CYTARABINE [Suspect]
     Active Substance: CYTARABINE
     Dosage: AE THERAPY
     Dates: start: 20220924
  6. VENETOCLAX [Suspect]
     Active Substance: VENETOCLAX
     Indication: Acute monocytic leukaemia
     Dosage: VAH
     Dates: start: 20220824
  7. ETOPOSIDE [Suspect]
     Active Substance: ETOPOSIDE
     Indication: Acute monocytic leukaemia
     Dosage: AE THERAPY
     Dates: start: 20220924
  8. VORICONAZOLE [Concomitant]
     Active Substance: VORICONAZOLE
     Indication: Antifungal prophylaxis
     Dates: start: 20220824
  9. VORICONAZOLE [Concomitant]
     Active Substance: VORICONAZOLE
     Dates: start: 20220924
  10. VORICONAZOLE [Concomitant]
     Active Substance: VORICONAZOLE
     Dates: start: 20220519
  11. VORICONAZOLE [Concomitant]
     Active Substance: VORICONAZOLE
     Dates: start: 20220618
  12. VORICONAZOLE [Concomitant]
     Active Substance: VORICONAZOLE
     Dates: start: 20220714
  13. ITRACONAZOLE [Concomitant]
     Active Substance: ITRACONAZOLE
     Indication: Antifungal prophylaxis
     Dates: start: 20220519
  14. MICAFUNGIN [Concomitant]
     Active Substance: MICAFUNGIN SODIUM
     Indication: Antifungal prophylaxis
     Dates: start: 20220714
  15. MICAFUNGIN [Concomitant]
     Active Substance: MICAFUNGIN SODIUM
     Dates: start: 20220824
  16. MICAFUNGIN [Concomitant]
     Active Substance: MICAFUNGIN SODIUM
     Dates: start: 20220519
  17. PIPERACILLIN [Concomitant]
     Active Substance: PIPERACILLIN
     Indication: Antibiotic prophylaxis
     Dates: start: 20220714
  18. PIPERACILLIN [Concomitant]
     Active Substance: PIPERACILLIN
     Dates: start: 20220519
  19. MEROPENEM [Concomitant]
     Active Substance: MEROPENEM
     Indication: Antibiotic prophylaxis
     Dates: start: 20220824
  20. MEROPENEM [Concomitant]
     Active Substance: MEROPENEM
     Dates: start: 20220924
  21. MEROPENEM [Concomitant]
     Active Substance: MEROPENEM
     Dates: start: 20220519
  22. MEROPENEM [Concomitant]
     Active Substance: MEROPENEM
     Dates: start: 20220714
  23. MEROPENEM [Concomitant]
     Active Substance: MEROPENEM
     Dates: start: 20220618
  24. VANCOMYCIN [Concomitant]
     Active Substance: VANCOMYCIN
     Indication: Antibiotic prophylaxis
     Dates: start: 20220714
  25. VANCOMYCIN [Concomitant]
     Active Substance: VANCOMYCIN
     Dates: start: 20220519

REACTIONS (1)
  - Mucormycosis [Recovering/Resolving]

NARRATIVE: CASE EVENT DATE: 20220101
